FAERS Safety Report 26190326 (Version 1)
Quarter: 2025Q4

REPORT INFORMATION
  Report Type: Spontaneous
  Country: US (occurrence: US)
  Receive Date: 20251223
  Receipt Date: 20251223
  Transmission Date: 20260118
  Serious: No
  Sender: MERCK KGAA
  Company Number: US-Merck Healthcare KGaA-2025048107

PATIENT

DRUGS (1)
  1. EUTHYROX [Suspect]
     Active Substance: LEVOTHYROXINE SODIUM
     Indication: Thyroid disorder

REACTIONS (5)
  - Asthenia [Unknown]
  - Hyperphagia [Unknown]
  - Abdominal distension [Unknown]
  - Weight increased [Unknown]
  - Product availability issue [Unknown]
